FAERS Safety Report 5342015-5 (Version None)
Quarter: 2007Q2

REPORT INFORMATION
  Report Type: 
  Country: None (occurrence: None)
  Receive Date: 20070412
  Receipt Date: 20070131
  Transmission Date: 20071010
  Serious: Yes (Other)
  Sender: FDA-Public Use
  Company Number: US-2007-003469

PATIENT
  Sex: Female

DRUGS (1)
  1. YAZ [Suspect]
     Indication: ENDOMETRIOSIS
     Dosage: 1 TAB(S), 1X/DAY, ORAL
     Route: 048

REACTIONS (1)
  - DEEP VEIN THROMBOSIS [None]
